FAERS Safety Report 16794727 (Version 3)
Quarter: 2020Q3

REPORT INFORMATION
  Report Type: Spontaneous
  Country: US (occurrence: US)
  Receive Date: 20190911
  Receipt Date: 20200814
  Transmission Date: 20201102
  Serious: No
  Sender: FDA-Public Use
  Company Number: US-PFIZER INC-2017426111

PATIENT
  Age: 66 Year
  Sex: Female

DRUGS (3)
  1. ESTRING [Suspect]
     Active Substance: ESTRADIOL
     Indication: URETHRAL ATROPHY
  2. ESTRING [Suspect]
     Active Substance: ESTRADIOL
     Indication: MENOPAUSE
  3. ESTRING [Suspect]
     Active Substance: ESTRADIOL
     Indication: ATROPHIC VULVOVAGINITIS
     Dosage: 1 DF, EVERY 3 MONTHS
     Route: 067
     Dates: start: 20170919

REACTIONS (2)
  - Drug ineffective [Unknown]
  - Illness [Recovered/Resolved]
